FAERS Safety Report 11174223 (Version 3)
Quarter: 2015Q2

REPORT INFORMATION
  Report Type: Spontaneous
  Country: US (occurrence: US)
  Receive Date: 20150609
  Receipt Date: 20150630
  Transmission Date: 20150821
  Serious: Yes (Other)
  Sender: FDA-Public Use
  Company Number: US-BIOGENIDEC-2015BI075171

PATIENT
  Age: 48 Year
  Sex: Female

DRUGS (17)
  1. 4-AMINOPYRIDINE [Concomitant]
     Active Substance: DALFAMPRIDINE
  2. SUCRALFATE. [Concomitant]
     Active Substance: SUCRALFATE
  3. GABAPENTIN. [Concomitant]
     Active Substance: GABAPENTIN
  4. TYSABRI [Suspect]
     Active Substance: NATALIZUMAB
     Indication: MULTIPLE SCLEROSIS
     Route: 042
     Dates: start: 20061117, end: 20150519
  5. PANTOPRAZOLE [Concomitant]
     Active Substance: PANTOPRAZOLE SODIUM
  6. CLONAZEPAM. [Concomitant]
     Active Substance: CLONAZEPAM
     Indication: MUSCLE SPASMS
  7. HYDROCODONE/ACETAMINOPHEN 10-325 [Concomitant]
  8. VARIVAX [Concomitant]
     Active Substance: VARICELLA-ZOSTER VIRUS STRAIN OKA/MERCK LIVE ANTIGEN
  9. LEMTRADA [Concomitant]
     Active Substance: ALEMTUZUMAB
  10. AMPICILLIN [Concomitant]
     Active Substance: AMPICILLIN
     Route: 048
  11. FENTANYL. [Concomitant]
     Active Substance: FENTANYL
  12. VOLTAREN 1% GEL [Concomitant]
  13. MIRTAZAPINE. [Concomitant]
     Active Substance: MIRTAZAPINE
  14. SIMVASTATIN. [Concomitant]
     Active Substance: SIMVASTATIN
  15. CARAFATE [Concomitant]
     Active Substance: SUCRALFATE
     Route: 048
  16. DIFLUCAN [Concomitant]
     Active Substance: FLUCONAZOLE
  17. LINZESS [Concomitant]
     Active Substance: LINACLOTIDE

REACTIONS (1)
  - Cerebrovascular accident [Not Recovered/Not Resolved]

NARRATIVE: CASE EVENT DATE: 20150527
